FAERS Safety Report 17618018 (Version 1)
Quarter: 2020Q2

REPORT INFORMATION
  Report Type: Spontaneous
  Country: US (occurrence: US)
  Receive Date: 20200402
  Receipt Date: 20200402
  Transmission Date: 20200713
  Serious: No
  Sender: FDA-Public Use
  Company Number: US-ROCHE-2372115

PATIENT
  Sex: Male

DRUGS (12)
  1. LAMICTAL [Concomitant]
     Active Substance: LAMOTRIGINE
     Route: 065
  2. ZOFRAN [Concomitant]
     Active Substance: ONDANSETRON HYDROCHLORIDE
     Route: 065
  3. ONDANSETRON [Concomitant]
     Active Substance: ONDANSETRON
     Route: 065
  4. IBUPROFEN. [Concomitant]
     Active Substance: IBUPROFEN
     Route: 065
  5. ERIVEDGE [Suspect]
     Active Substance: VISMODEGIB
     Indication: CONGENITAL ANOMALY
     Route: 065
  6. PRILOSEC [Concomitant]
     Active Substance: OMEPRAZOLE MAGNESIUM
     Route: 065
  7. DIAZEPAM. [Concomitant]
     Active Substance: DIAZEPAM
     Route: 065
  8. EXCEDRIN EXTRA STRENGTH [Concomitant]
     Active Substance: ACETAMINOPHEN\ASPIRIN\CAFFEINE
     Route: 065
  9. GABAPENTIN. [Concomitant]
     Active Substance: GABAPENTIN
     Route: 065
  10. OXYCODONE HYDROCHLORIDE. [Concomitant]
     Active Substance: OXYCODONE HYDROCHLORIDE
     Route: 065
  11. LITHIUM CARBONATE. [Concomitant]
     Active Substance: LITHIUM CARBONATE
     Route: 065
  12. PROCHLORPERAZINE. [Concomitant]
     Active Substance: PROCHLORPERAZINE
     Route: 065

REACTIONS (6)
  - Nausea [Not Recovered/Not Resolved]
  - Off label use [Unknown]
  - Myalgia [Not Recovered/Not Resolved]
  - Fatigue [Not Recovered/Not Resolved]
  - Muscle spasms [Not Recovered/Not Resolved]
  - Intentional product use issue [Unknown]
